FAERS Safety Report 16070631 (Version 2)
Quarter: 2019Q1

REPORT INFORMATION
  Report Type: Spontaneous
  Country: IT (occurrence: IT)
  Receive Date: 20190314
  Receipt Date: 20190326
  Transmission Date: 20190418
  Serious: Yes (Death, Life-Threatening)
  Sender: FDA-Public Use
  Company Number: IT-ROCHE-2281776

PATIENT
  Sex: Female

DRUGS (2)
  1. BRIVIRAC [Interacting]
     Active Substance: BRIVUDINE
     Indication: PRODUCT USED FOR UNKNOWN INDICATION
     Route: 065
  2. CAPECITABINE. [Suspect]
     Active Substance: CAPECITABINE
     Indication: BREAST CANCER
     Route: 065

REACTIONS (6)
  - Bone marrow failure [Fatal]
  - Death [Fatal]
  - Labelled drug-drug interaction medication error [Fatal]
  - Stomatitis [Fatal]
  - Drug interaction [Unknown]
  - Thrombocytopenia [Fatal]
